FAERS Safety Report 5314019-X (Version None)
Quarter: 2007Q2

REPORT INFORMATION
  Report Type: 
  Country: None (occurrence: None)
  Receive Date: 20070501
  Receipt Date: 20070419
  Transmission Date: 20071010
  Serious: Yes (Hospitalization)
  Sender: FDA-Public Use
  Company Number: FR-ROCHE-458332

PATIENT
  Sex: Male

DRUGS (2)
  1. CELLCEPT [Suspect]
     Indication: MULTIPLE SCLEROSIS
     Route: 065
  2. PREDNISONE TAB [Concomitant]
     Indication: MULTIPLE SCLEROSIS
     Dosage: DOSE: 80 MG/24 HOURS UPTO MAY 2006, THEN VERY PROGRESSIVE WITHDRAWAL

REACTIONS (6)
  - ARTHRALGIA [None]
  - BONE GRAFT [None]
  - OSTEONECROSIS [None]
  - ROTATOR CUFF SYNDROME [None]
  - TENDON CALCIFICATION [None]
  - TENDONITIS [None]
